FAERS Safety Report 25116739 (Version 2)
Quarter: 2025Q1

REPORT INFORMATION
  Report Type: Spontaneous
  Country: JP (occurrence: JP)
  Receive Date: 20250325
  Receipt Date: 20250328
  Transmission Date: 20250409
  Serious: Yes (Hospitalization, Other)
  Sender: ALEXION PHARMACEUTICALS
  Company Number: JP-AstraZeneca-CH-00829572A

PATIENT
  Age: 8 Year

DRUGS (1)
  1. ULTOMIRIS [Suspect]
     Active Substance: RAVULIZUMAB-CWVZ
     Indication: Atypical haemolytic uraemic syndrome

REACTIONS (4)
  - Bacteraemia [Recovering/Resolving]
  - Coronavirus test positive [Recovering/Resolving]
  - Rhinovirus infection [Recovering/Resolving]
  - Enterovirus infection [Recovering/Resolving]
